FAERS Safety Report 18102106 (Version 2)
Quarter: 2020Q3

REPORT INFORMATION
  Report Type: Spontaneous
  Country: CN (occurrence: CN)
  Receive Date: 20200803
  Receipt Date: 20200814
  Transmission Date: 20201103
  Serious: Yes (Death)
  Sender: FDA-Public Use
  Company Number: CN-AMGEN-CHNSP2020123832

PATIENT
  Age: 70 Year
  Sex: Male

DRUGS (2)
  1. GRAN [Suspect]
     Active Substance: FILGRASTIM
     Indication: WHITE BLOOD CELL COUNT DECREASED
     Dosage: 300 MICROGRAM
     Route: 065
  2. GRAN [Suspect]
     Active Substance: FILGRASTIM
     Indication: PLATELET COUNT DECREASED
     Dosage: 150 UG, QD
     Route: 058
     Dates: start: 20200723, end: 20200724

REACTIONS (1)
  - Left ventricular failure [Fatal]

NARRATIVE: CASE EVENT DATE: 20200724
